FAERS Safety Report 18020210 (Version 1)
Quarter: 2020Q3

REPORT INFORMATION
  Report Type: Spontaneous
  Country: US (occurrence: US)
  Receive Date: 20200714
  Receipt Date: 20200714
  Transmission Date: 20201103
  Serious: Yes (Hospitalization)
  Sender: FDA-Public Use
  Company Number: None

PATIENT
  Age: 48 Year
  Sex: Female
  Weight: 145 kg

DRUGS (3)
  1. ACTEMRA [Concomitant]
     Active Substance: TOCILIZUMAB
     Dates: start: 20200629, end: 20200629
  2. REMDESIVIR. [Suspect]
     Active Substance: REMDESIVIR
     Indication: COVID-19
     Dates: start: 20200629, end: 20200630
  3. DEXAMETHASONE INJ [Concomitant]
     Dates: start: 20200627, end: 20200702

REACTIONS (1)
  - Bradycardia [None]

NARRATIVE: CASE EVENT DATE: 20200701
